FAERS Safety Report 5980020-6 (Version None)
Quarter: 2008Q4

REPORT INFORMATION
  Report Type: 
  Country: None (occurrence: None)
  Receive Date: 20081205
  Receipt Date: 20081124
  Transmission Date: 20090506
  Serious: Yes (Hospitalization)
  Sender: FDA-Public Use
  Company Number: US-CELGENEUS-163-20785-08111420

PATIENT
  Sex: Female

DRUGS (4)
  1. THALOMID [Suspect]
     Indication: MULTIPLE MYELOMA
     Route: 048
     Dates: start: 20070109
  2. THALOMID [Suspect]
     Route: 048
     Dates: start: 20050124, end: 20061001
  3. THALOMID [Suspect]
     Route: 048
     Dates: start: 20041110, end: 20041201
  4. THALOMID [Suspect]
     Dosage: 200MG, 100MG
     Route: 048
     Dates: start: 20040319, end: 20041101

REACTIONS (3)
  - INTESTINAL OBSTRUCTION [None]
  - PANCREATITIS [None]
  - URINARY TRACT INFECTION [None]
